FAERS Safety Report 17448426 (Version 1)
Quarter: 2020Q3

REPORT INFORMATION
  Report Type: Report from Study
  Country: JP (occurrence: JP)
  Receive Date: 20200223
  Receipt Date: 20200223
  Transmission Date: 20201104
  Serious: Yes (Other)
  Sender: FDA-Public Use
  Company Number: JP-ROCHE-2548790

PATIENT

DRUGS (1)
  1. ALECTINIB. [Suspect]
     Active Substance: ALECTINIB
     Indication: NON-SMALL CELL LUNG CANCER
     Route: 065

REACTIONS (11)
  - Blood creatine phosphokinase increased [Unknown]
  - Constipation [Unknown]
  - Pulmonary toxicity [Unknown]
  - Skin toxicity [Unknown]
  - Hepatotoxicity [Unknown]
  - Oedema [Unknown]
  - Thrombocytopenia [Unknown]
  - Anaemia [Unknown]
  - Leukopenia [Unknown]
  - Fatigue [Unknown]
  - Diarrhoea [Unknown]
